FAERS Safety Report 16671460 (Version 2)
Quarter: 2019Q3

REPORT INFORMATION
  Report Type: Spontaneous
  Country: GB (occurrence: GB)
  Receive Date: 20190806
  Receipt Date: 20190827
  Transmission Date: 20191004
  Serious: Yes (Hospitalization, Other)
  Sender: FDA-Public Use
  Company Number: GB-AUROBINDO-AUR-APL-2019-046351

PATIENT

DRUGS (1)
  1. CITALOPRAM [Suspect]
     Active Substance: CITALOPRAM HYDROBROMIDE
     Indication: DEPRESSION SUICIDAL
     Dosage: 20 MILLIGRAM
     Route: 048
     Dates: start: 20190625, end: 20190628

REACTIONS (3)
  - Facial paralysis [Recovered/Resolved]
  - Muscle spasms [Recovered/Resolved]
  - Facial spasm [Recovered/Resolved]

NARRATIVE: CASE EVENT DATE: 20190625
